FAERS Safety Report 5532173-1 (Version None)
Quarter: 2007Q4

REPORT INFORMATION
  Report Type: 
  Country: None (occurrence: None)
  Receive Date: 20071203
  Receipt Date: 20071128
  Transmission Date: 20080405
  Serious: Yes (Hospitalization)
  Sender: FDA-Public Use
  Company Number: DE-AVENTIS-200712968DE

PATIENT
  Age: 59 Year
  Sex: Male
  Weight: 75 kg

DRUGS (1)
  1. APIDRA [Suspect]
     Dosage: DOSE: NOT REPORTED
     Route: 058
     Dates: start: 20060101

REACTIONS (3)
  - ONYCHOMYCOSIS [None]
  - PAIN IN EXTREMITY [None]
  - SKIN DISORDER [None]
